FAERS Safety Report 7463339-1 (Version None)
Quarter: 2011Q2

REPORT INFORMATION
  Report Type: 
  Country: None (occurrence: None)
  Receive Date: 20110506
  Receipt Date: 20110429
  Transmission Date: 20111010
  Serious: Yes (Hospitalization)
  Sender: FDA-Public Use
  Company Number: FR-PFIZER INC-2011071671

PATIENT
  Age: 73 Year
  Sex: Male
  Weight: 76 kg

DRUGS (14)
  1. ASPEGIC 325 [Concomitant]
  2. RIVOTRIL [Concomitant]
  3. NEXIUM [Concomitant]
  4. CORDARONE [Concomitant]
  5. ESCITALOPRAM [Concomitant]
  6. OXYCONTIN [Concomitant]
  7. PLAVIX [Concomitant]
  8. OMIX [Concomitant]
  9. BACTRIM [Concomitant]
  10. PRIMPERAN TAB [Concomitant]
  11. TAHOR [Concomitant]
  12. TOPALGIC [Concomitant]
  13. TORISEL [Suspect]
     Indication: MANTLE CELL LYMPHOMA
     Dosage: 75 MG, UNK
     Dates: start: 20110120, end: 20110204
  14. AMLODIPINE BESYLATE [Concomitant]

REACTIONS (3)
  - RENAL FAILURE ACUTE [None]
  - PROTEINURIA [None]
  - NEPHROTIC SYNDROME [None]
